FAERS Safety Report 4286364-0 (Version None)
Quarter: 2004Q1

REPORT INFORMATION
  Report Type: 
  Country: None (occurrence: None)
  Receive Date: 20040121
  Receipt Date: 20030428
  Transmission Date: 20041129
  Serious: Yes (Hospitalization)
  Sender: FDA-Public Use
  Company Number: A03200300879

PATIENT
  Age: 81 Year
  Sex: Male
  Weight: 70.3075 kg

DRUGS (6)
  1. PLAVIX [Suspect]
     Indication: STENT PLACEMENT
     Dosage: 75 MG QD-ORAL
     Route: 048
     Dates: start: 20030301, end: 20030401
  2. ACETYLSALICYLIC ACID SRT [Concomitant]
  3. ATENOLOL [Concomitant]
  4. GLYBURIDE [Concomitant]
  5. DIGOXIN [Concomitant]
  6. VITAMIN E [Concomitant]

REACTIONS (4)
  - CONSTIPATION [None]
  - FATIGUE [None]
  - INSOMNIA [None]
  - RECTAL HAEMORRHAGE [None]
